FAERS Safety Report 20900280 (Version 1)
Quarter: 2022Q2

REPORT INFORMATION
  Report Type: Spontaneous
  Country: CN (occurrence: CN)
  Receive Date: 20220601
  Receipt Date: 20220601
  Transmission Date: 20220721
  Serious: Yes (Other)
  Sender: FDA-Public Use
  Company Number: CN-JNJFOC-20220561305

PATIENT
  Age: 12 Day
  Sex: Male
  Weight: 1 kg

DRUGS (1)
  1. CHILDRENS MOTRIN [Suspect]
     Active Substance: IBUPROFEN
     Indication: Patent ductus arteriosus
     Route: 048
     Dates: start: 20220516, end: 20220516

REACTIONS (2)
  - Haemorrhage intracranial [Not Recovered/Not Resolved]
  - Anuria [Not Recovered/Not Resolved]

NARRATIVE: CASE EVENT DATE: 20220516
